FAERS Safety Report 7286092-3 (Version None)
Quarter: 2011Q1

REPORT INFORMATION
  Report Type: 
  Country: None (occurrence: None)
  Receive Date: 20110210
  Receipt Date: 20110207
  Transmission Date: 20110831
  Serious: Yes (Other)
  Sender: FDA-Public Use
  Company Number: US-MYLANLABS-2011S1002043

PATIENT
  Age: 10 Year
  Sex: Female
  Weight: 56.7 kg

DRUGS (5)
  1. CELEXA [Concomitant]
  2. VERSED [Concomitant]
  3. SEROQUEL [Concomitant]
  4. VISTARIL [Concomitant]
  5. KETAMINE HCL [Suspect]
     Indication: ANAESTHESIA
     Route: 042
     Dates: start: 20110126, end: 20110126

REACTIONS (3)
  - BRADYCARDIA [None]
  - APNOEA [None]
  - HYPOTENSION [None]
